FAERS Safety Report 8880483 (Version 3)
Quarter: 2012Q4

REPORT INFORMATION
  Report Type: 
  Country: US (occurrence: US)
  Receive Date: 20121101
  Receipt Date: 20121220
  Transmission Date: 20130627
  Serious: Yes (Other)
  Sender: FDA-Public Use
  Company Number: US-SP-2012-09992

PATIENT
  Age: 23 Year
  Sex: Female

DRUGS (7)
  1. TUBERSOL [Suspect]
     Indication: TUBERCULIN TEST
     Route: 023
     Dates: start: 20121023, end: 20121023
  2. FLUARIX 2010/2011 [Suspect]
     Indication: IMMUNISATION
     Route: 065
     Dates: start: 20121023, end: 20121023
  3. IMURAN [Concomitant]
  4. CYTOMEL [Concomitant]
  5. ADDERALL [Concomitant]
  6. SEASONALE [Concomitant]
  7. LEVOTHYROXINE [Concomitant]

REACTIONS (3)
  - Hypersensitivity [Recovered/Resolved]
  - Pruritus generalised [Recovered/Resolved]
  - Urticaria [Recovered/Resolved]
